FAERS Safety Report 6799168-1 (Version None)
Quarter: 2010Q2

REPORT INFORMATION
  Report Type: 
  Country: None (occurrence: None)
  Receive Date: 20100615
  Receipt Date: 20100608
  Transmission Date: 20101027
  Serious: Yes (Hospitalization)
  Sender: FDA-Public Use
  Company Number: 2007-152597-NL

PATIENT
  Age: 23 Year
  Sex: Female
  Weight: 73.9 kg

DRUGS (3)
  1. NUVARING [Suspect]
     Indication: CONTRACEPTION
     Dosage: VAG
     Route: 067
     Dates: start: 20050801
  2. ORTHO EVRA [Suspect]
     Indication: DRUG USE FOR UNKNOWN INDICATION
     Dosage: TDER
     Dates: start: 20030301
  3. NEXIUM [Concomitant]

REACTIONS (36)
  - ACUTE MYOCARDIAL INFARCTION [None]
  - COGNITIVE DISORDER [None]
  - CONTUSION [None]
  - CORONARY ARTERY THROMBOSIS [None]
  - DEVICE STIMULATION ISSUE [None]
  - DILATATION VENTRICULAR [None]
  - DIZZINESS [None]
  - DRUG EXPOSURE DURING PREGNANCY [None]
  - DYSLIPIDAEMIA [None]
  - DYSPNOEA [None]
  - DYSTHYMIC DISORDER [None]
  - GENE MUTATION [None]
  - HERPES SIMPLEX [None]
  - HYPERCOAGULATION [None]
  - HYPERHIDROSIS [None]
  - INTERMITTENT CLAUDICATION [None]
  - ISCHAEMIC CARDIOMYOPATHY [None]
  - LEFT VENTRICULAR DYSFUNCTION [None]
  - MAJOR DEPRESSION [None]
  - MUSCLE SPASMS [None]
  - MUSCLE STRAIN [None]
  - MUSCULOSKELETAL DISORDER [None]
  - NAUSEA [None]
  - OBESITY [None]
  - PAIN IN EXTREMITY [None]
  - PANIC DISORDER [None]
  - PERICARDIAL EFFUSION [None]
  - PERIPHERAL ARTERIAL OCCLUSIVE DISEASE [None]
  - POST-TRAUMATIC STRESS DISORDER [None]
  - PREGNANCY WITH CONTRACEPTIVE DEVICE [None]
  - PROTEIN S DEFICIENCY [None]
  - ROAD TRAFFIC ACCIDENT [None]
  - SINUS TACHYCARDIA [None]
  - TOBACCO USER [None]
  - TRICUSPID VALVE INCOMPETENCE [None]
  - VOMITING [None]
